FAERS Safety Report 8896208 (Version 2)
Quarter: 2012Q4

REPORT INFORMATION
  Report Type: 
  Country: US (occurrence: US)
  Receive Date: 20121108
  Receipt Date: 20121122
  Transmission Date: 20130627
  Serious: Yes (Other)
  Sender: FDA-Public Use
  Company Number: PHEH2012US019551

PATIENT
  Sex: Female
  Weight: 100.68 kg

DRUGS (7)
  1. GILENYA [Suspect]
     Indication: MULTIPLE SCLEROSIS
     Dosage: 0.5 mg, QD
     Route: 048
     Dates: start: 20120125
  2. ORENCIA [Interacting]
     Indication: RHEUMATOID ARTHRITIS
     Route: 042
  3. CYMBALTA [Concomitant]
     Dosage: 60 mg, QD
     Route: 048
  4. LISINOPRIL [Concomitant]
     Dosage: 5 mg, QD
     Route: 048
  5. METHOTREXAT [Concomitant]
     Dosage: 1.5 mg, 10 per week
     Route: 048
  6. SIMVASTATIN [Concomitant]
     Dosage: 40 mg, QHS
     Route: 048
  7. FOLIC ACID [Concomitant]
     Dosage: 1 mg, QD
     Route: 048

REACTIONS (4)
  - Balance disorder [Not Recovered/Not Resolved]
  - Tremor [Not Recovered/Not Resolved]
  - Gait disturbance [Not Recovered/Not Resolved]
  - Drug interaction [Unknown]
